FAERS Safety Report 24761624 (Version 2)
Quarter: 2025Q1

REPORT INFORMATION
  Report Type: Spontaneous
  Country: KR (occurrence: KR)
  Receive Date: 20241220
  Receipt Date: 20250103
  Transmission Date: 20250409
  Serious: Yes (Other)
  Sender: MEITHEAL PHARMACEUTICALS
  Company Number: KR-MEITHEAL-2024MPLIT00446

PATIENT
  Age: 24 Year
  Sex: Female

DRUGS (2)
  1. FLUOROURACIL [Suspect]
     Active Substance: FLUOROURACIL
     Indication: Conjunctival bleb
     Route: 057
  2. FLUOROURACIL [Suspect]
     Active Substance: FLUOROURACIL
     Indication: Conjunctival bleb

REACTIONS (3)
  - Cataract [Recovered/Resolved]
  - Product use issue [Unknown]
  - Off label use [Unknown]
